FAERS Safety Report 18266711 (Version 4)
Quarter: 2020Q4

REPORT INFORMATION
  Report Type: Spontaneous
  Country: US (occurrence: US)
  Receive Date: 20200915
  Receipt Date: 20201117
  Transmission Date: 20210113
  Serious: Yes (Congenital Anomaly, Other)
  Sender: FDA-Public Use
  Company Number: US-SA-2020SA246046

PATIENT

DRUGS (5)
  1. PROMETHAZINE [Suspect]
     Active Substance: PROMETHAZINE HYDROCHLORIDE
     Dosage: 12.5 MG, QID, 4 TIMES DAILY
     Route: 064
  2. ONDANSETRON [Suspect]
     Active Substance: ONDANSETRON
     Dosage: 4 MG, QD; 8 MG HALF TABLET DAILY
     Route: 064
  3. PRENATAL [FOLIC ACID;IRON] [Suspect]
     Active Substance: FOLIC ACID\IRON\MINERALS\VITAMINS
     Dosage: 0.8 MG, QD
     Route: 064
  4. ZANTAC [Suspect]
     Active Substance: RANITIDINE HYDROCHLORIDE
     Dosage: 150 MG, BID
     Route: 064
     Dates: start: 201503, end: 201509
  5. BUPRENORPHINE HYDROCHLORIDE. [Suspect]
     Active Substance: BUPRENORPHINE HYDROCHLORIDE
     Route: 064

REACTIONS (4)
  - Craniofacial deformity [Unknown]
  - Lip disorder [Unknown]
  - Foetal exposure during pregnancy [Unknown]
  - Cleft palate [Unknown]
